FAERS Safety Report 21121606 (Version 1)
Quarter: 2022Q3

REPORT INFORMATION
  Report Type: Spontaneous
  Country: PR (occurrence: PR)
  Receive Date: 20220722
  Receipt Date: 20220722
  Transmission Date: 20221027
  Serious: No
  Sender: FDA-Public Use
  Company Number: PR-JAZZ-2022-PR-012035

PATIENT
  Sex: Male
  Weight: 70.4 kg

DRUGS (1)
  1. RYLAZE [Suspect]
     Active Substance: ASPARAGINASE ERWINIA CHRYSANTHEMI (RECOMBINANT)-RYWN
     Indication: Product used for unknown indication
     Dosage: MONDAY, WEDNESDAY, FRIDAY
     Route: 030
     Dates: start: 20220408

REACTIONS (3)
  - Underdose [Unknown]
  - Off label use [Unknown]
  - Product packaging quantity issue [Unknown]
